FAERS Safety Report 6942044-1 (Version None)
Quarter: 2010Q3

REPORT INFORMATION
  Report Type: 
  Country: None (occurrence: None)
  Receive Date: 20100826
  Receipt Date: 20100817
  Transmission Date: 20110219
  Serious: Yes (Other)
  Sender: FDA-Public Use
  Company Number: US-JNJFOC-20090608501

PATIENT
  Sex: Female
  Weight: 47.63 kg

DRUGS (2)
  1. TOPAMAX [Suspect]
     Indication: EPILEPSY
     Route: 048
  2. IMITREX [Concomitant]
     Route: 065

REACTIONS (3)
  - ANGER [None]
  - CONVULSION [None]
  - FALL [None]
